FAERS Safety Report 9802859 (Version 1)
Quarter: 2014Q1

REPORT INFORMATION
  Report Type: Spontaneous
  Country: NO (occurrence: None)
  Receive Date: 20140102
  Receipt Date: 20140102
  Transmission Date: 20141002
  Serious: Yes (Hospitalization)
  Sender: FDA-Public Use
  Company Number: AUR-APL-2013-10800

PATIENT
  Age: 69 Year
  Sex: Female

DRUGS (15)
  1. SIMVASTATIN (SIMVASTATIN) [Suspect]
     Indication: HYPERCHOLESTEROLAEMIA
     Route: 048
  2. AFINITOR (EVERLOIMUS) [Suspect]
     Indication: BREAST CANCER
     Route: 048
     Dates: start: 20131008, end: 20131023
  3. AROMASIN (EXEMESTANE) [Concomitant]
  4. SPRIIX (SPIRONOLACTONE) [Concomitant]
  5. CALCIGRAN FORTE (LEKOVIT CA) [Concomitant]
  6. XGEVA (DENOSUMAB) [Concomitant]
  7. PARAFINEMULSJON NAF (PARAFFIN) [Concomitant]
  8. PARACET (PARACETAMOL) [Concomitant]
  9. CENTYL MED KALIUM (SALURES-K) [Concomitant]
  10. CRANBERRY (VACCINIUM MACROCARPON) [Concomitant]
  11. OXYCONTIN (OXYCODONE HYDROCHLORIDE) [Concomitant]
  12. ASCORBIC ACID (ASCORBIC ACID) [Concomitant]
  13. VIVAL (DIAZEPAM) [Concomitant]
  14. TRIATEC (PANADEINE CO) [Concomitant]
  15. IMOVANE (ZOPICLONE) [Concomitant]

REACTIONS (4)
  - Rhabdomyolysis [None]
  - Drug interaction [None]
  - Alanine aminotransferase increased [None]
  - Haemoglobin decreased [None]
